FAERS Safety Report 5549832-7 (Version None)
Quarter: 2007Q4

REPORT INFORMATION
  Report Type: 
  Country: None (occurrence: None)
  Receive Date: 20071212
  Receipt Date: 20071210
  Transmission Date: 20080405
  Serious: Yes (Hospitalization)
  Sender: FDA-Public Use
  Company Number: US-BRISTOL-MYERS SQUIBB COMPANY-14009781

PATIENT
  Age: 28 Year
  Sex: Male

DRUGS (4)
  1. BLEOMYCIN [Suspect]
     Indication: GERM CELL CANCER
     Dosage: 1DOSAGE FORM=240 UNITS.
  2. ETOPOSIDE [Suspect]
     Indication: GERM CELL CANCER
  3. CISPLATIN [Suspect]
     Indication: GERM CELL CANCER
  4. OXYGEN [Suspect]
     Indication: THORACOTOMY

REACTIONS (2)
  - ACUTE RESPIRATORY DISTRESS SYNDROME [None]
  - PULMONARY TOXICITY [None]
